FAERS Safety Report 7641277-9 (Version None)
Quarter: 2011Q3

REPORT INFORMATION
  Report Type: 
  Country: None (occurrence: None)
  Receive Date: 20110728
  Receipt Date: 20110721
  Transmission Date: 20111222
  Serious: Yes (Hospitalization, Other)
  Sender: FDA-Public Use
  Company Number: JP-B.I. PHARMACEUTICALS,INC./RIDGEFIELD-2011-BP-17600NB

PATIENT
  Sex: Male

DRUGS (9)
  1. EXFORGE [Concomitant]
     Route: 048
  2. LASIX [Concomitant]
     Dosage: 20 MG
     Route: 048
  3. ADENOSINE [Concomitant]
     Route: 048
  4. TORSEMIDE [Concomitant]
     Dosage: 4 MG
     Route: 048
  5. DIGOXIN [Concomitant]
     Dosage: 0.125 MG
     Route: 048
  6. PRADAXA [Suspect]
     Indication: ATRIAL FIBRILLATION
     Dosage: 300 MG
     Route: 048
     Dates: start: 20110617
  7. NEUQUINON [Concomitant]
     Dosage: 10 MG
     Route: 048
  8. COMELIAN [Concomitant]
     Dosage: 300 MG
     Route: 048
  9. CARVEDILOL [Concomitant]
     Dosage: 2.5 MG
     Route: 048

REACTIONS (4)
  - BLOOD PRESSURE SYSTOLIC DECREASED [None]
  - URTICARIA [None]
  - FEELING ABNORMAL [None]
  - COAGULATION TEST ABNORMAL [None]
